FAERS Safety Report 9059472 (Version 1)
Quarter: 2013Q1

REPORT INFORMATION
  Report Type: Spontaneous
  Country: US (occurrence: US)
  Receive Date: 20130211
  Receipt Date: 20130211
  Transmission Date: 20140127
  Serious: Yes (Hospitalization)
  Sender: FDA-Public Use
  Company Number: US-JNJFOC-20130201010

PATIENT
  Age: 42 Year
  Sex: Male

DRUGS (4)
  1. REMICADE [Suspect]
     Indication: CROHN^S DISEASE
     Route: 042
     Dates: start: 20130130
  2. REMICADE [Suspect]
     Indication: CROHN^S DISEASE
     Dosage: A YEAR AGO FROM THE DATE OF THIS REPORT
     Route: 042
  3. REMICADE [Suspect]
     Indication: CROHN^S DISEASE
     Route: 042
  4. REMICADE [Suspect]
     Indication: CROHN^S DISEASE
     Route: 042
     Dates: start: 201301

REACTIONS (3)
  - Gastrointestinal haemorrhage [Recovering/Resolving]
  - Intestinal stenosis [Unknown]
  - Therapeutic response decreased [Unknown]
